FAERS Safety Report 12289584 (Version 1)
Quarter: 2016Q2

REPORT INFORMATION
  Report Type: Spontaneous
  Country: US (occurrence: None)
  Receive Date: 20160420
  Receipt Date: 20160420
  Transmission Date: 20160815
  Serious: Yes (Life-Threatening, Hospitalization, Other)
  Sender: FDA-Public Use
  Company Number: None

PATIENT
  Age: 59 Year
  Sex: Male

DRUGS (1)
  1. LORAZEPAM. [Suspect]
     Active Substance: LORAZEPAM
     Indication: AGITATION
     Dosage: SINGLE DOSE
     Route: 048
     Dates: start: 20090412, end: 20090412

REACTIONS (2)
  - Confusional state [None]
  - Acute respiratory failure [None]

NARRATIVE: CASE EVENT DATE: 20090412
